FAERS Safety Report 19093802 (Version 4)
Quarter: 2021Q3

REPORT INFORMATION
  Report Type: Report from Study
  Country: IN (occurrence: IN)
  Receive Date: 20210405
  Receipt Date: 20210713
  Transmission Date: 20211014
  Serious: Yes (Hospitalization)
  Sender: FDA-Public Use
  Company Number: NVSC2021IN070244

PATIENT
  Age: 47 Year
  Sex: Female

DRUGS (2)
  1. PIVIKTO [Suspect]
     Active Substance: ALPELISIB
     Dosage: 150 MG, QD
     Route: 065
     Dates: start: 20210318, end: 20210702
  2. PIVIKTO [Suspect]
     Active Substance: ALPELISIB
     Indication: BREAST CANCER METASTATIC
     Dosage: 300 MG, QD
     Route: 065
     Dates: start: 20210304, end: 20210317

REACTIONS (8)
  - Malignant neoplasm progression [Unknown]
  - Blood glucose increased [Not Recovered/Not Resolved]
  - Product use issue [Unknown]
  - Blood sodium increased [Not Recovered/Not Resolved]
  - Hyperglycaemia [Not Recovered/Not Resolved]
  - Breast cancer metastatic [Unknown]
  - Fatigue [Not Recovered/Not Resolved]
  - Electrolyte depletion [Unknown]

NARRATIVE: CASE EVENT DATE: 20210310
